FAERS Safety Report 8579031-6 (Version None)
Quarter: 2012Q3

REPORT INFORMATION
  Report Type: 
  Country: None (occurrence: None)
  Receive Date: 20120808
  Receipt Date: 20120727
  Transmission Date: 20120928
  Serious: Yes (Hospitalization)
  Sender: FDA-Public Use
  Company Number: DE-ROCHE-1013032

PATIENT
  Sex: Male
  Weight: 67 kg

DRUGS (1)
  1. VALCYTE [Suspect]
     Indication: CYTOMEGALOVIRUS INFECTION
     Dosage: LAST DOSE PRIOR TO EVENT 25 SEP 2011
     Route: 048
     Dates: start: 20110913, end: 20110925

REACTIONS (2)
  - RESPIRATORY TRACT INFECTION [None]
  - RESPIRATORY FAILURE [None]
